FAERS Safety Report 8064631 (Version 2)
Quarter: 2012Q4

REPORT INFORMATION
  Report Type: 
  Country: US (occurrence: US)
  Receive Date: 20110802
  Receipt Date: 20120925
  Transmission Date: 20130627
  Serious: Yes (Other)
  Sender: FDA-Public Use
  Company Number: US-ROCHE-757307

PATIENT
  Age: 37 Year
  Sex: Female
  Weight: 45.4 kg

DRUGS (1)
  1. ACCUTANE [Suspect]
     Indication: ACNE
     Route: 065
     Dates: start: 19831107, end: 19840328

REACTIONS (10)
  - Colitis ulcerative [Unknown]
  - Abdominal pain [Unknown]
  - Rectal haemorrhage [Unknown]
  - Depression [Unknown]
  - Inflammatory bowel disease [Unknown]
  - Cholangitis sclerosing [Unknown]
  - Lip dry [Unknown]
  - Myalgia [Unknown]
  - Headache [Unknown]
  - Dry skin [Unknown]
